FAERS Safety Report 25658774 (Version 1)
Quarter: 2025Q3

REPORT INFORMATION
  Report Type: Other
  Country: GB (occurrence: GB)
  Receive Date: 20250808
  Receipt Date: 20250808
  Transmission Date: 20251021
  Serious: Yes (Life-Threatening, Hospitalization, Other)
  Sender: GLENMARK
  Company Number: None

PATIENT
  Sex: Male
  Weight: 73 kg

DRUGS (6)
  1. ROPINIROLE HYDROCHLORIDE [Suspect]
     Active Substance: ROPINIROLE HYDROCHLORIDE
     Indication: Parkinson^s disease
     Dosage: 10 MILLIGRAM, OD
     Route: 065
     Dates: start: 2023
  2. CLONAZEPAM [Concomitant]
     Active Substance: CLONAZEPAM
     Indication: Parkinsonism
     Route: 065
  3. RASAGILINE [Concomitant]
     Active Substance: RASAGILINE
     Indication: Parkinson^s disease
     Route: 065
  4. CARBIDOPA\LEVODOPA [Concomitant]
     Active Substance: CARBIDOPA\LEVODOPA
     Indication: Parkinson^s disease
     Route: 065
  5. SENNA [Concomitant]
     Active Substance: SENNOSIDES
     Indication: Constipation
     Route: 065
  6. DOCUSATE [Concomitant]
     Active Substance: DOCUSATE
     Indication: Constipation
     Route: 065

REACTIONS (4)
  - Suicidal ideation [Unknown]
  - Hypersexuality [Recovering/Resolving]
  - Impulse-control disorder [Recovering/Resolving]
  - Hallucination [Recovering/Resolving]

NARRATIVE: CASE EVENT DATE: 20230101
